FAERS Safety Report 9161222 (Version 1)
Quarter: 2013Q1

REPORT INFORMATION
  Report Type: Spontaneous
  Country: FR (occurrence: FR)
  Receive Date: 20130313
  Receipt Date: 20130313
  Transmission Date: 20140127
  Serious: Yes (Other)
  Sender: FDA-Public Use
  Company Number: FR-B.I. PHARMACEUTICALS,INC./RIDGEFIELD-2013-FF-00693FF

PATIENT
  Sex: Male

DRUGS (2)
  1. PRADAXA [Suspect]
     Route: 048
  2. CORTICOSTEROIDS [Concomitant]

REACTIONS (1)
  - Myocardial infarction [Unknown]
